FAERS Safety Report 8889875 (Version 4)
Quarter: 2014Q1

REPORT INFORMATION
  Report Type: Report from Study
  Country: JP (occurrence: JP)
  Receive Date: 20121107
  Receipt Date: 20140131
  Transmission Date: 20141002
  Serious: Yes (Other)
  Sender: FDA-Public Use
  Company Number: JP-VERTEX PHARMACEUTICAL INC.-AE-2012-008841

PATIENT
  Age: 55 Year
  Sex: Male

DRUGS (14)
  1. VX-950 (TELAPREVIR) [Suspect]
     Indication: CHRONIC HEPATITIS C
     Dosage: 2250 MG, QD
     Route: 048
     Dates: start: 20120518, end: 20120726
  2. REBETOL [Suspect]
     Indication: CHRONIC HEPATITIS C
     Dosage: 800 MG, QD
     Route: 048
     Dates: start: 20120518, end: 20120524
  3. REBETOL [Suspect]
     Dosage: 1000 MG, QD
     Route: 048
     Dates: start: 20120525, end: 20120531
  4. REBETOL [Suspect]
     Dosage: 600 MG, QD
     Route: 048
     Dates: start: 20120601, end: 20120607
  5. REBETOL [Suspect]
     Dosage: 400 MG, QD
     Route: 048
     Dates: start: 20120608, end: 20120621
  6. REBETOL [Suspect]
     Dosage: 200 MG, QD
     Route: 048
     Dates: start: 20120622, end: 20120726
  7. PEGINTERFERON ALFA-2B [Suspect]
     Indication: CHRONIC HEPATITIS C
     Dosage: 1.2 ?G/KG, QW
     Route: 058
     Dates: start: 20120518, end: 20120518
  8. PEGINTERFERON ALFA-2B [Suspect]
     Dosage: 1.5 ?G/KG, QW
     Route: 058
     Dates: start: 20120525, end: 20120720
  9. URSO [Concomitant]
     Dosage: 600 MG, QD
     Route: 048
  10. EXCEGRAN [Concomitant]
     Dosage: 200 MG, QD
     Route: 048
  11. DIOVAN [Concomitant]
     Dosage: 80 MG, QD
     Route: 048
     Dates: end: 20120705
  12. AMLODIN [Concomitant]
     Dosage: 5 MG, QD
     Route: 048
     Dates: end: 20120705
  13. ARTIST [Concomitant]
     Dosage: 10 MG, QD
     Route: 048
     Dates: end: 20120705
  14. PURSENNID [Concomitant]
     Dosage: 1 DF, QD, PRN

REACTIONS (1)
  - Drug eruption [Recovered/Resolved]
